FAERS Safety Report 9791242 (Version 2)
Quarter: 2014Q1

REPORT INFORMATION
  Report Type: Report from Study
  Country: US (occurrence: US)
  Receive Date: 20140101
  Receipt Date: 20140101
  Transmission Date: 20141002
  Serious: Yes (Other)
  Sender: FDA-Public Use
  Company Number: US-ROCHE-1320235

PATIENT
  Age: 30 Year
  Sex: Male

DRUGS (6)
  1. MYCOPHENOLATE MOFETIL [Suspect]
     Indication: ENCEPHALITIS
     Dosage: TAKE ON AN EMPTY STOMACH ONE HOUR BEFORE OR TWO HOURS AFTER THE MEAL
     Route: 048
     Dates: start: 201111
  2. MYCOPHENOLATE MOFETIL [Suspect]
     Indication: ENCEPHALITIS AUTOIMMUNE
  3. BACLOFEN [Concomitant]
     Route: 048
  4. LEVETIRACETAM [Concomitant]
     Route: 048
  5. ERGOCALCIFEROL [Concomitant]
     Route: 048
  6. KEPPRA [Concomitant]
     Indication: CONVULSION
     Route: 065

REACTIONS (15)
  - Deafness [Unknown]
  - Encephalitis autoimmune [Unknown]
  - Dysarthria [Unknown]
  - Nystagmus [Unknown]
  - Joint lock [Unknown]
  - Abasia [Unknown]
  - Ataxia [Unknown]
  - Lymph nodes scan abnormal [Unknown]
  - Testicular microlithiasis [Unknown]
  - Acquired hydrocele [Unknown]
  - Blood immunoglobulin G increased [Unknown]
  - Monocyte count increased [Unknown]
  - CSF oligoclonal band [Unknown]
  - Gliosis [Unknown]
  - Nuclear magnetic resonance imaging abnormal [Unknown]
